FAERS Safety Report 8538048-8 (Version None)
Quarter: 2012Q3

REPORT INFORMATION
  Report Type: 
  Country: None (occurrence: None)
  Receive Date: 20120725
  Receipt Date: 20120719
  Transmission Date: 20120928
  Serious: Yes (Hospitalization, Other)
  Sender: FDA-Public Use
  Company Number: US-FRI-1000029099

PATIENT
  Age: 65 Year
  Sex: Female

DRUGS (4)
  1. ASPIRIN [Concomitant]
  2. BYSTOLIC [Suspect]
     Indication: HYPERTENSION
     Dosage: 10 MG
     Dates: start: 20110501, end: 20120205
  3. NORVASC [Suspect]
     Indication: HYPERTENSION
     Dates: start: 20120201
  4. LISINOPRIL [Concomitant]
     Indication: HYPERTENSION

REACTIONS (15)
  - CARDIAC FAILURE [None]
  - DEPRESSION [None]
  - ABDOMINAL PAIN [None]
  - RESPIRATORY ARREST [None]
  - ANXIETY [None]
  - CONSTIPATION [None]
  - DIARRHOEA [None]
  - HYPOKALAEMIA [None]
  - CARDIAC ARREST [None]
  - SINUS BRADYCARDIA [None]
  - URINARY INCONTINENCE [None]
  - DIZZINESS [None]
  - SYNCOPE [None]
  - CHEST DISCOMFORT [None]
  - FATIGUE [None]
